FAERS Safety Report 6741579-4 (Version None)
Quarter: 2010Q2

REPORT INFORMATION
  Report Type: 
  Country: None (occurrence: None)
  Receive Date: 20100526
  Receipt Date: 20100513
  Transmission Date: 20101027
  Serious: Yes (Other)
  Sender: FDA-Public Use
  Company Number: JP-ABBOTT-09P-087-0581131-00

PATIENT
  Sex: Female

DRUGS (5)
  1. LEUPRORELIN DEPOT [Suspect]
     Indication: BREAST CANCER
     Route: 058
     Dates: start: 20070730
  2. LEUPRORELIN DEPOT [Suspect]
     Indication: MENOPAUSE
  3. TAMOXIFEN CITRATE [Concomitant]
     Indication: BREAST CANCER
     Dates: start: 20070730
  4. TAMOXIFEN CITRATE [Concomitant]
     Indication: BREAST CANCER RECURRENT
  5. TAMOXIFEN CITRATE [Concomitant]
     Indication: PROPHYLAXIS

REACTIONS (1)
  - BREAST CANCER [None]
